FAERS Safety Report 11982098 (Version 2)
Quarter: 2016Q1

REPORT INFORMATION
  Report Type: Spontaneous
  Country: US (occurrence: US)
  Receive Date: 20160201
  Receipt Date: 20160220
  Transmission Date: 20160526
  Serious: Yes (Hospitalization)
  Sender: FDA-Public Use
  Company Number: US-AUROBINDO-AUR-APL-2016-00759

PATIENT

DRUGS (3)
  1. BENAZEPRIL [Suspect]
     Active Substance: BENAZEPRIL HYDROCHLORIDE
     Indication: PRODUCT USED FOR UNKNOWN INDICATION
     Dosage: 20 MG, UNK
     Route: 065
  2. BENAZEPRIL [Suspect]
     Active Substance: BENAZEPRIL HYDROCHLORIDE
     Dosage: 40 MG, UNK
     Route: 065
  3. HYDROCHLOROTHIAZIDE. [Suspect]
     Active Substance: HYDROCHLOROTHIAZIDE
     Indication: PRODUCT USED FOR UNKNOWN INDICATION
     Route: 065

REACTIONS (10)
  - Angioedema [Recovered/Resolved]
  - Genital swelling [Recovered/Resolved]
  - Dysuria [Recovered/Resolved]
  - Respiratory disorder [Recovered/Resolved]
  - Penile pain [Recovered/Resolved]
  - Oropharyngeal swelling [Recovered/Resolved]
  - Penile infection [Recovered/Resolved]
  - Acquired phimosis [Recovered/Resolved]
  - Scrotal oedema [Recovered/Resolved]
  - Condition aggravated [Recovered/Resolved]
